FAERS Safety Report 5897552-1 (Version None)
Quarter: 2008Q3

REPORT INFORMATION
  Report Type: 
  Country: None (occurrence: None)
  Receive Date: 20080925
  Receipt Date: 20051108
  Transmission Date: 20090109
  Serious: Yes (Death, Life-Threatening, Hospitalization, Other)
  Sender: FDA-Public Use
  Company Number: PL-BAYER-PL-2005-014716

PATIENT
  Age: 44 Year
  Sex: Male
  Weight: 74 kg

DRUGS (17)
  1. CAMPATH [Suspect]
     Indication: CHRONIC LYMPHOCYTIC LEUKAEMIA
     Route: 042
     Dates: start: 20050120, end: 20050617
  2. FLUDARABINE PHOSPHATE [Suspect]
     Indication: CHRONIC LYMPHOCYTIC LEUKAEMIA
     Route: 042
     Dates: start: 20050120, end: 20050617
  3. RIFAMPICIN [Concomitant]
     Indication: TUBERCULOSIS
     Route: 048
     Dates: start: 20050707
  4. VEROSPIRON [Concomitant]
     Indication: FLUID RETENTION
     Route: 048
     Dates: start: 20050707
  5. VITAMIN B6 [Concomitant]
     Indication: TUBERCULOSIS
     Route: 048
     Dates: start: 20050707
  6. HEPA-MERZ [Concomitant]
     Indication: BILIARY CIRRHOSIS
     Route: 048
     Dates: start: 20050702
  7. NEUPOGEN [Concomitant]
     Indication: GRANULOCYTOPENIA
     Route: 058
     Dates: start: 20050713
  8. POTASSIUM CHLORIDE [Concomitant]
     Indication: HYPOKALAEMIA
     Route: 042
     Dates: start: 20050629
  9. FUROSEMIDE [Concomitant]
     Indication: OEDEMA
     Route: 042
     Dates: start: 20050711
  10. VFEND [Concomitant]
     Indication: FUNGAL INFECTION
     Route: 042
     Dates: start: 20050712
  11. MERONEM [Concomitant]
     Indication: INFECTION
     Route: 042
     Dates: start: 20050702
  12. ZOFRAN [Concomitant]
     Indication: VOMITING
     Route: 042
     Dates: start: 20050702
  13. GLUCOSE [Concomitant]
     Indication: HEPATOCELLULAR INJURY
     Route: 042
     Dates: start: 20050721
  14. ALBUMIN [Concomitant]
     Indication: HYPOPROTEINAEMIA
     Route: 042
     Dates: start: 20050712
  15. NITROGLYCERIN [Concomitant]
     Indication: HYPERTONIA
     Route: 042
     Dates: start: 20050718
  16. KABIVEN [Concomitant]
     Indication: PARENTERAL NUTRITION
     Route: 042
     Dates: start: 20050712
  17. SOLU-MEDROL [Concomitant]
     Indication: CHRONIC LYMPHOCYTIC LEUKAEMIA
     Route: 042
     Dates: start: 20050714

REACTIONS (9)
  - COMA HEPATIC [None]
  - FEBRILE NEUTROPENIA [None]
  - HEPATOCELLULAR INJURY [None]
  - HODGKIN'S DISEASE [None]
  - HYPOKALAEMIA [None]
  - MULTI-ORGAN FAILURE [None]
  - PANCYTOPENIA [None]
  - PNEUMONIA [None]
  - VOMITING [None]
